FAERS Safety Report 12625044 (Version 3)
Quarter: 2017Q1

REPORT INFORMATION
  Report Type: Report from Study
  Country: US (occurrence: US)
  Receive Date: 20160805
  Receipt Date: 20170310
  Transmission Date: 20170428
  Serious: Yes (Hospitalization)
  Sender: FDA-Public Use
  Company Number: US-TAIHO ONCOLOGY INC-EU-2016-01892

PATIENT
  Age: 61 Year
  Sex: Male
  Weight: 109.41 kg

DRUGS (2)
  1. LONSURF [Suspect]
     Active Substance: TIPIRACIL HYDROCHLORIDE\TRIFLURIDINE
     Indication: COLON CANCER METASTATIC
     Dosage: DOSAGE UNKNOWN
     Route: 048
     Dates: start: 201602
  2. ACTOS [Concomitant]
     Active Substance: PIOGLITAZONE HYDROCHLORIDE
     Indication: DIABETES MELLITUS
     Dosage: NI

REACTIONS (6)
  - Weight decreased [Unknown]
  - Urinary retention [Unknown]
  - Feeding disorder [Recovered/Resolved]
  - Intestinal obstruction [Recovered/Resolved]
  - Incontinence [Unknown]
  - Prostatomegaly [Unknown]

NARRATIVE: CASE EVENT DATE: 2016
